FAERS Safety Report 7622243-6 (Version None)
Quarter: 2011Q3

REPORT INFORMATION
  Report Type: 
  Country: None (occurrence: None)
  Receive Date: 20110720
  Receipt Date: 20110701
  Transmission Date: 20111222
  Serious: Yes (Death, Other)
  Sender: FDA-Public Use
  Company Number: US-BAYER-2011-006267

PATIENT
  Age: 64 Year
  Sex: Male

DRUGS (24)
  1. PLAVIX [Concomitant]
     Dosage: 75 MG, QD
     Route: 048
  2. TRASYLOL [Suspect]
     Indication: VENTRICULAR ASSIST DEVICE INSERTION
     Dosage: UNK
     Route: 042
     Dates: start: 20060507, end: 20060507
  3. DIGOXIN [Concomitant]
     Dosage: 0.25 MG, QD
     Route: 048
  4. NORVASC [Concomitant]
     Dosage: 5 MG, QD
     Route: 048
  5. LEVOPHED [Concomitant]
     Dosage: UNK
     Route: 042
     Dates: start: 20070522
  6. TRASYLOL [Suspect]
     Dosage: 4 MILLION UNITS
     Route: 042
     Dates: start: 20070522, end: 20070522
  7. LOPRESSOR [Concomitant]
     Dosage: 100 MG, BID
     Route: 048
  8. VYTORIN [Concomitant]
     Dosage: 10/20 DAILY
     Route: 048
  9. PAXIL [Concomitant]
     Dosage: 30 MG, QD
     Route: 048
  10. ATENOLOL [Concomitant]
     Dosage: 100 MG, QD
     Route: 048
  11. MILRINONE [Concomitant]
     Dosage: UNK
     Route: 042
     Dates: start: 20070522
  12. PITRESSIN [Concomitant]
     Dosage: UNK
     Route: 042
     Dates: start: 20070522
  13. TRASYLOL [Suspect]
     Indication: HEART TRANSPLANT
  14. DOPAMINE HCL [Concomitant]
     Dosage: UNK
     Route: 042
     Dates: start: 20070522
  15. COUMADIN [Concomitant]
     Dosage: 7.5 MG, HS
     Route: 048
  16. POTASSIUM CHLORIDE [Concomitant]
     Dosage: 20 MILLIEQUIVALENTS DAILY
     Route: 048
  17. TRASYLOL [Suspect]
     Indication: IMPLANTABLE DEFIBRILLATOR INSERTION
  18. ACETYLSALICYLIC ACID SRT [Concomitant]
     Dosage: 325 MG, QD
     Route: 048
  19. LASIX [Concomitant]
     Dosage: 40 MG, QD
     Route: 048
  20. ATACAND [Concomitant]
     Dosage: 16 MG, QD
     Route: 048
  21. COZAAR [Concomitant]
     Dosage: 50 MG, BID
     Route: 048
  22. HEPARIN [Concomitant]
     Dosage: UNK
  23. GLUCOPHAGE [Concomitant]
     Dosage: 1000 MG, BID
     Route: 048
  24. DOBUTAMINE HCL [Concomitant]
     Dosage: UNK
     Route: 042
     Dates: start: 20070522

REACTIONS (11)
  - EMOTIONAL DISORDER [None]
  - UNEVALUABLE EVENT [None]
  - RENAL INJURY [None]
  - PAIN [None]
  - RENAL FAILURE [None]
  - FEAR [None]
  - STRESS [None]
  - DEATH [None]
  - RENAL IMPAIRMENT [None]
  - ANXIETY [None]
  - MULTI-ORGAN FAILURE [None]
